FAERS Safety Report 5929424-8 (Version None)
Quarter: 2008Q4

REPORT INFORMATION
  Report Type: 
  Country: None (occurrence: None)
  Receive Date: 20081024
  Receipt Date: 20081014
  Transmission Date: 20090506
  Serious: Yes (Other)
  Sender: FDA-Public Use
  Company Number: IL-ABBOTT-08P-082-0481990-00

PATIENT
  Sex: Female

DRUGS (4)
  1. RITONAVIR SOFT GELATIN CAPSULES [Suspect]
     Indication: HIV INFECTION
     Route: 048
  2. TMC125 [Concomitant]
     Indication: HIV INFECTION
     Route: 048
  3. DARUNAVIR [Concomitant]
     Indication: HIV INFECTION
     Route: 048
  4. EMTRICITABINE [Concomitant]
     Indication: HIV INFECTION

REACTIONS (2)
  - ABORTION INDUCED [None]
  - FOETAL GROWTH RETARDATION [None]
